FAERS Safety Report 9073930 (Version 1)
Quarter: 2013Q1

REPORT INFORMATION
  Report Type: Spontaneous
  Country: US (occurrence: US)
  Receive Date: 20130129
  Receipt Date: 20130129
  Transmission Date: 20140127
  Serious: Yes (Hospitalization)
  Sender: FDA-Public Use
  Company Number: US-ABBOTT-12P-163-0928833-00

PATIENT
  Age: 43 None
  Sex: Male
  Weight: 90.8 kg

DRUGS (4)
  1. HUMIRA 40 MG/ 0.8 ML PRE-FILLED SYRINGE [Suspect]
     Indication: PSORIASIS
     Route: 058
     Dates: start: 201201
  2. HUMIRA 40 MG/ 0.8 ML PRE-FILLED SYRINGE [Suspect]
     Indication: ECZEMA
     Route: 058
  3. LIPITOR [Concomitant]
     Indication: BLOOD CHOLESTEROL INCREASED
  4. NORVASC [Concomitant]
     Indication: HYPERTENSION
     Dates: start: 20120406

REACTIONS (10)
  - Kidney infection [Recovered/Resolved]
  - Renal abscess [Recovered/Resolved]
  - Chromaturia [Recovered/Resolved]
  - Headache [Recovering/Resolving]
  - Nausea [Recovering/Resolving]
  - Vomiting [Recovering/Resolving]
  - Herpes zoster [Recovered/Resolved]
  - Sinusitis [Recovering/Resolving]
  - Blood pressure increased [Not Recovered/Not Resolved]
  - Nephrolithiasis [Unknown]
